FAERS Safety Report 16350592 (Version 17)
Quarter: 2022Q3

REPORT INFORMATION
  Report Type: Spontaneous
  Country: JP (occurrence: JP)
  Receive Date: 20190524
  Receipt Date: 20220719
  Transmission Date: 20221026
  Serious: Yes (Hospitalization, Other)
  Sender: FDA-Public Use
  Company Number: JP-ONO-2019JP017713

PATIENT
  Age: 74 Year
  Sex: Female
  Weight: 47.1 kg

DRUGS (23)
  1. PARSABIV [Suspect]
     Active Substance: ETELCALCETIDE HYDROCHLORIDE
     Indication: Hyperparathyroidism secondary
     Dosage: 5 MILLIGRAM, QWK
     Route: 010
     Dates: start: 20181006
  2. DARBEPOETIN ALFA [Concomitant]
     Active Substance: DARBEPOETIN ALFA
     Dosage: 40 MICROGRAM, QWK
     Route: 051
     Dates: end: 20190406
  3. DARBEPOETIN ALFA [Concomitant]
     Active Substance: DARBEPOETIN ALFA
     Dosage: 10 MICROGRAM, QWK
     Route: 051
     Dates: start: 20190413, end: 20190817
  4. DARBEPOETIN ALFA [Concomitant]
     Active Substance: DARBEPOETIN ALFA
     Dosage: 15 MICROGRAM, QWK
     Route: 051
     Dates: start: 20190907, end: 20190921
  5. OXAROL MARUHO [Concomitant]
     Dosage: 2.5 UG, Q56H
     Route: 042
     Dates: end: 20180608
  6. OXAROL MARUHO [Concomitant]
     Dosage: 5 UG, Q56H
     Route: 042
     Dates: start: 20180609, end: 20180906
  7. OXAROL MARUHO [Concomitant]
     Dosage: 10 UG, Q56H
     Route: 042
     Dates: start: 20180911, end: 20190124
  8. OXAROL MARUHO [Concomitant]
     Dosage: 5 UG, Q56H
     Route: 042
     Dates: start: 20190126, end: 20190905
  9. OXAROL MARUHO [Concomitant]
     Dosage: 2.5 UG, Q56H
     Route: 042
     Dates: start: 20190907, end: 20200326
  10. OXAROL MARUHO [Concomitant]
     Dosage: 5 UG, Q56H
     Route: 042
     Dates: start: 20200328, end: 20201008
  11. OXAROL MARUHO [Concomitant]
     Dosage: 2.5 UG, Q56H
     Route: 042
     Dates: start: 20201010, end: 20201201
  12. OXAROL MARUHO [Concomitant]
     Dosage: 2.5 UG, Q56H
     Route: 042
     Dates: start: 20210515, end: 20210622
  13. OXAROL MARUHO [Concomitant]
     Dosage: 5.0 UG, Q56H
     Route: 042
     Dates: start: 20210624, end: 20210805
  14. OXAROL MARUHO [Concomitant]
     Dosage: 2.5 UG, Q56H
     Route: 042
     Dates: start: 20210807, end: 20220113
  15. OXAROL MARUHO [Concomitant]
     Dosage: 2.5 UG, Q84H
     Route: 042
     Dates: start: 20220219, end: 20220301
  16. OXAROL MARUHO [Concomitant]
     Dosage: 5 MICROGRAM, Q56H
     Route: 042
     Dates: start: 20220421, end: 20220519
  17. OXAROL MARUHO [Concomitant]
     Dosage: 5.0 UG, Q56H
     Route: 042
     Dates: start: 20220521
  18. FOSRENOL [Concomitant]
     Active Substance: LANTHANUM CARBONATE
     Dosage: 750 MG, EVERYDAY
     Route: 065
     Dates: start: 20180607, end: 20190228
  19. IRON SUCROSE [Concomitant]
     Active Substance: IRON SUCROSE
     Dosage: 40 MILLIGRAM, QWK
     Route: 065
  20. DARBEPOETIN ALFA [Concomitant]
     Active Substance: DARBEPOETIN ALFA
     Dosage: 15 UG, QW
     Route: 065
     Dates: start: 20190928, end: 20191123
  21. DARBEPOETIN ALFA [Concomitant]
     Active Substance: DARBEPOETIN ALFA
     Dosage: 20 UG, QW
     Route: 065
     Dates: start: 20191130, end: 20200111
  22. DARBEPOETIN ALFA [Concomitant]
     Active Substance: DARBEPOETIN ALFA
     Dosage: 30 UG, QW
     Route: 065
     Dates: start: 20200118, end: 20200523
  23. DARBEPOETIN ALFA [Concomitant]
     Active Substance: DARBEPOETIN ALFA
     Dosage: 40 UG, QW
     Route: 065
     Dates: start: 20200530

REACTIONS (5)
  - Gastroenteritis [Recovered/Resolved]
  - Shunt occlusion [Recovered/Resolved]
  - Skin exfoliation [Recovered/Resolved]
  - Steal syndrome [Recovering/Resolving]
  - Shunt stenosis [Recovered/Resolved]

NARRATIVE: CASE EVENT DATE: 20181124
